FAERS Safety Report 7764437-5 (Version None)
Quarter: 2011Q3

REPORT INFORMATION
  Report Type: 
  Country: None (occurrence: None)
  Receive Date: 20110919
  Receipt Date: 20110914
  Transmission Date: 20111222
  Serious: Yes (Other)
  Sender: FDA-Public Use
  Company Number: 2011AT000240

PATIENT
  Sex: Male

DRUGS (2)
  1. WARFARIN SODIUM [Concomitant]
  2. ALPROSTADIL [Suspect]
     Indication: PRODUCT USED FOR UNKNOWN INDICATION
     Dosage: 40 UG;ONCE EVERY SIX MONTHS

REACTIONS (5)
  - TESTICULAR PAIN [None]
  - PAIN IN EXTREMITY [None]
  - SCROTAL PAIN [None]
  - ABASIA [None]
  - MUSCLE SPASMS [None]
